FAERS Safety Report 20720784 (Version 1)
Quarter: 2022Q2

REPORT INFORMATION
  Report Type: Spontaneous
  Country: US (occurrence: None)
  Receive Date: 20220415
  Receipt Date: 20220415
  Transmission Date: 20220720
  Serious: Yes (Hospitalization)
  Sender: FDA-Public Use
  Company Number: None

PATIENT

DRUGS (1)
  1. OCREVUS [Suspect]
     Active Substance: OCRELIZUMAB

REACTIONS (8)
  - Fatigue [None]
  - Nausea [None]
  - Condition aggravated [None]
  - Balance disorder [None]
  - Fall [None]
  - Loss of consciousness [None]
  - COVID-19 [None]
  - Cough [None]
